FAERS Safety Report 6327879-0 (Version None)
Quarter: 2009Q3

REPORT INFORMATION
  Report Type: 
  Country: None (occurrence: None)
  Receive Date: 20090824
  Receipt Date: 20090818
  Transmission Date: 20100115
  Serious: Yes (Hospitalization)
  Sender: FDA-Public Use
  Company Number: 20090012USST

PATIENT
  Sex: Male

DRUGS (2)
  1. LEVOCARNIL ORAL SOLUTION (LEVOCARNITINE) [Suspect]
     Indication: CARNITINE DEFICIENCY
  2. VALPROATE SODIUM [Concomitant]

REACTIONS (4)
  - DIARRHOEA [None]
  - HAEMATOMA [None]
  - PROTHROMBIN LEVEL ABNORMAL [None]
  - VITAMIN K DEFICIENCY [None]
